FAERS Safety Report 4310716-3 (Version None)
Quarter: 2004Q1

REPORT INFORMATION
  Report Type: 
  Country: None (occurrence: None)
  Receive Date: 20040301
  Receipt Date: 20031210
  Transmission Date: 20041129
  Serious: No
  Sender: FDA-Public Use
  Company Number: WAES 0312USA01194

PATIENT
  Sex: Female

DRUGS (11)
  1. ZETIA [Suspect]
     Indication: HYPERCHOLESTEROLAEMIA
     Dosage: 10 MG/DAILY/PO
     Route: 048
  2. COZAAR [Concomitant]
  3. GLUCOVANCE [Concomitant]
  4. NORVASC [Concomitant]
  5. PLAVIX [Concomitant]
  6. PROTONIX [Concomitant]
  7. ZOCOR [Concomitant]
  8. ATENOLOL [Concomitant]
  9. FOLIC ACID [Concomitant]
  10. INSULIN [Concomitant]
  11. ISOSORBIDE MONONITRATE [Concomitant]

REACTIONS (3)
  - ABDOMINAL DISCOMFORT [None]
  - DYSPNOEA [None]
  - HALITOSIS [None]
